FAERS Safety Report 5959673-4 (Version None)
Quarter: 2008Q4

REPORT INFORMATION
  Report Type: 
  Country: None (occurrence: None)
  Receive Date: 20081120
  Receipt Date: 20081106
  Transmission Date: 20090506
  Serious: Yes (Hospitalization, Other)
  Sender: FDA-Public Use
  Company Number: ES-ELI_LILLY_AND_COMPANY-ES200811001486

PATIENT
  Age: 71 Year
  Sex: Female

DRUGS (8)
  1. FORTEO [Suspect]
     Indication: OSTEOPOROSIS
     Dosage: 20 UG, UNKNOWN
     Route: 058
     Dates: start: 20080901, end: 20081022
  2. INSULIN [Concomitant]
     Indication: DIABETES MELLITUS
     Dosage: UNK, UNKNOWN
     Route: 065
  3. ENALAPRIL [Concomitant]
     Dosage: UNK, UNKNOWN
     Route: 065
  4. DOBUPAL [Concomitant]
     Dosage: UNK, UNKNOWN
     Route: 065
  5. FERROGRADUMET [Concomitant]
     Dosage: UNK, UNKNOWN
     Route: 065
  6. LEXATIN [Concomitant]
     Dosage: UNK, UNKNOWN
     Route: 065
  7. CALCIUM [Concomitant]
     Dosage: UNK, UNKNOWN
     Route: 065
  8. DACORTIN [Concomitant]
     Dosage: UNK, UNKNOWN
     Route: 065

REACTIONS (10)
  - ANAEMIA [None]
  - BLOOD PRESSURE DECREASED [None]
  - CARDIAC FAILURE [None]
  - HAEMORRHOIDS [None]
  - LUNG INFECTION [None]
  - MITRAL VALVE INCOMPETENCE [None]
  - MITRAL VALVE STENOSIS [None]
  - PULMONARY OEDEMA [None]
  - SYSTEMIC LUPUS ERYTHEMATOSUS [None]
  - TACHYCARDIA [None]
